FAERS Safety Report 7769075-6 (Version None)
Quarter: 2011Q3

REPORT INFORMATION
  Report Type: 
  Country: None (occurrence: None)
  Receive Date: 20110922
  Receipt Date: 20100517
  Transmission Date: 20111222
  Serious: No
  Sender: FDA-Public Use
  Company Number: US-ASTRAZENECA-2010SE44926

PATIENT
  Age: 54 Year
  Sex: Female

DRUGS (5)
  1. SEROQUEL [Suspect]
     Route: 048
     Dates: start: 20020807
  2. GEODON [Concomitant]
     Dosage: 1 CAPSULE TWI
     Dates: start: 20020415
  3. EFFEXOR XR [Concomitant]
     Dosage: 75 MG-150 MG T CAPSULE EVE
     Dates: start: 20020415
  4. TOPAMAX [Concomitant]
     Dosage: 4 TABLETS AT
     Dates: start: 20021113
  5. FLUVOXAMINE MALEATE [Concomitant]
     Dosage: 50-100
     Dates: start: 20020522

REACTIONS (4)
  - POSTMENOPAUSAL HAEMORRHAGE [None]
  - CHEST PAIN [None]
  - DIABETES MELLITUS INADEQUATE CONTROL [None]
  - TENDONITIS [None]
